FAERS Safety Report 9656038 (Version 1)
Quarter: 2013Q4

REPORT INFORMATION
  Report Type: Spontaneous
  Country: US (occurrence: None)
  Receive Date: 20131029
  Receipt Date: 20131029
  Transmission Date: 20140711
  Serious: No
  Sender: FDA-Public Use
  Company Number: None

PATIENT
  Age: 53 Year
  Sex: Male
  Weight: 106.6 kg

DRUGS (1)
  1. ATORVASTATIN [Suspect]
     Indication: BLOOD CHOLESTEROL INCREASED
     Dosage: 1 ONCE DAILY
     Route: 048
     Dates: start: 20130508, end: 20131016

REACTIONS (6)
  - Back pain [None]
  - Dysgeusia [None]
  - Parosmia [None]
  - Sinus disorder [None]
  - No therapeutic response [None]
  - Road traffic accident [None]
